FAERS Safety Report 12396011 (Version 1)
Quarter: 2016Q2

REPORT INFORMATION
  Report Type: Spontaneous
  Country: US (occurrence: US)
  Receive Date: 20160524
  Receipt Date: 20160524
  Transmission Date: 20160815
  Serious: Yes (Death, Other)
  Sender: FDA-Public Use
  Company Number: US-TAKEDA-TPA2013A01406

PATIENT

DRUGS (6)
  1. LEVEMIR [Concomitant]
     Active Substance: INSULIN DETEMIR
     Dates: start: 2012
  2. DIABETA [Concomitant]
     Active Substance: GLYBURIDE
     Dosage: 5 MG, UNK
     Dates: start: 1995, end: 2010
  3. LANTUS [Concomitant]
     Active Substance: INSULIN GLARGINE
     Dosage: UNK
     Dates: start: 1995
  4. METFORMIN [Concomitant]
     Active Substance: METFORMIN HYDROCHLORIDE
     Dates: start: 201212
  5. AVANDIA [Concomitant]
     Active Substance: ROSIGLITAZONE MALEATE
     Dosage: 45 MG, UNK
     Dates: start: 1999, end: 2001
  6. ACTOS [Suspect]
     Active Substance: PIOGLITAZONE HYDROCHLORIDE
     Indication: TYPE 2 DIABETES MELLITUS
     Dosage: 45 MG, UNK
     Route: 048
     Dates: start: 20021202, end: 20090430

REACTIONS (9)
  - Death [Fatal]
  - Penile haemorrhage [Unknown]
  - Penile pain [Unknown]
  - Pain [Unknown]
  - Immune system disorder [Unknown]
  - Back pain [Unknown]
  - Sexual dysfunction [Unknown]
  - Micturition disorder [Unknown]
  - Bladder cancer [Unknown]

NARRATIVE: CASE EVENT DATE: 2002
